FAERS Safety Report 4273696-5 (Version None)
Quarter: 2004Q1

REPORT INFORMATION
  Report Type: 
  Country: None (occurrence: None)
  Receive Date: 20040119
  Receipt Date: 20031218
  Transmission Date: 20041129
  Serious: Yes (Hospitalization, Disabling)
  Sender: FDA-Public Use
  Company Number: JP-ROCHE-354424

PATIENT
  Age: 63 Year
  Sex: Female
  Weight: 60 kg

DRUGS (8)
  1. XELODA [Suspect]
     Indication: BREAST CANCER
     Route: 048
     Dates: start: 20031110, end: 20031123
  2. XELODA [Suspect]
     Route: 048
     Dates: start: 20031124, end: 20031207
  3. CHLORPHENIRAMINE MALEATE [Concomitant]
     Route: 041
  4. FAMOTIDINE [Concomitant]
     Route: 041
  5. DEXAMETHASONE [Concomitant]
     Route: 041
  6. HYDROCORTISONE SODIUM SUCCINATE [Concomitant]
     Route: 041
  7. ONDANSETRON [Concomitant]
     Route: 041
  8. 5 HT-3 ANTAGONIST [Concomitant]
     Dates: start: 20031124

REACTIONS (7)
  - ASTHENIA [None]
  - DISORIENTATION [None]
  - HYPOAESTHESIA [None]
  - MENINGITIS [None]
  - NAUSEA [None]
  - SPEECH DISORDER [None]
  - VOMITING [None]
